FAERS Safety Report 5672000-5 (Version None)
Quarter: 2008Q1

REPORT INFORMATION
  Report Type: 
  Country: None (occurrence: None)
  Receive Date: 20080318
  Receipt Date: 20080318
  Transmission Date: 20080703
  Serious: Yes (Other)
  Sender: FDA-Public Use
  Company Number: None

PATIENT
  Sex: Male
  Weight: 68.0396 kg

DRUGS (1)
  1. DAYTRANA [Suspect]
     Indication: ATTENTION DEFICIT/HYPERACTIVITY DISORDER
     Dosage: OD SKIN PATCH
     Dates: start: 20080220

REACTIONS (2)
  - ACCIDENTAL EXPOSURE [None]
  - PHARMACEUTICAL PRODUCT COMPLAINT [None]
